FAERS Safety Report 13095998 (Version 1)
Quarter: 2017Q1

REPORT INFORMATION
  Report Type: Spontaneous
  Country: US (occurrence: US)
  Receive Date: 20170109
  Receipt Date: 20170109
  Transmission Date: 20170428
  Serious: Yes (Hospitalization)
  Sender: FDA-Public Use
  Company Number: US-ACCORD-047037

PATIENT
  Age: 13 Year
  Sex: Female
  Weight: 57 kg

DRUGS (2)
  1. CLOPIDOGREL [Suspect]
     Active Substance: CLOPIDOGREL BISULFATE
     Indication: DEVICE EMBOLISATION
     Dosage: STANDARD ADULT REGIMEN??OVER THE NEXT 2 WEEKS, CAREFULLY TITRATED TO REACH A TARGET OF 40-60%
  2. ACETYLSALICYLIC ACID [Suspect]
     Active Substance: ASPIRIN
     Indication: ANTIPLATELET THERAPY
     Dosage: STANDARD ADULT REGIMEN

REACTIONS (2)
  - Extravasation [Recovered/Resolved]
  - Epistaxis [Recovered/Resolved]
